FAERS Safety Report 12206956 (Version 2)
Quarter: 2016Q2

REPORT INFORMATION
  Report Type: Spontaneous
  Country: US (occurrence: US)
  Receive Date: 20160324
  Receipt Date: 20160518
  Transmission Date: 20160815
  Serious: No
  Sender: FDA-Public Use
  Company Number: US-BRISTOL-MYERS SQUIBB COMPANY-BMS-2016-019406

PATIENT
  Sex: Male
  Weight: 117.91 kg

DRUGS (1)
  1. ELIQUIS [Suspect]
     Active Substance: APIXABAN
     Indication: ATRIAL FLUTTER
     Dosage: 5 MG, UNK
     Route: 048

REACTIONS (5)
  - Rash macular [Unknown]
  - Product use issue [Unknown]
  - Off label use [Unknown]
  - Dizziness [Unknown]
  - Diarrhoea [Unknown]
